FAERS Safety Report 5072906-4 (Version None)
Quarter: 2006Q3

REPORT INFORMATION
  Report Type: 
  Country: None (occurrence: None)
  Receive Date: 20060802
  Receipt Date: 20060724
  Transmission Date: 20061208
  Serious: Yes (Life-Threatening, Hospitalization, Other)
  Sender: FDA-Public Use
  Company Number: HQWYE436619JAN06

PATIENT
  Age: 75 Year
  Sex: Male

DRUGS (9)
  1. CORDARONE [Suspect]
     Indication: ATRIAL FIBRILLATION
     Dosage: 200 MG TABLET; ORAL
     Route: 048
     Dates: start: 20051113, end: 20051123
  2. CORDARONE [Suspect]
     Indication: ATRIAL FLUTTER
     Dosage: 200 MG TABLET; ORAL
     Route: 048
     Dates: start: 20051113, end: 20051123
  3. CANCIDAS [Suspect]
     Indication: ASPERGILLOSIS
     Dosage: POWDER FORM; 50MG UNIT DOSE INTRAVENOUS
     Route: 042
     Dates: start: 20051127, end: 20051209
  4. CIPROFLOXACIN [Suspect]
     Indication: ASPERGILLOSIS
     Dates: start: 20051125, end: 20051130
  5. CEFTAZIDIME PENTAHYDRATE [Suspect]
     Dates: start: 20051114
  6. OMEPRAZOLE [Suspect]
     Dosage: DOSE FORM - POWDER - 40 MG DOSE; INTRAVENOUS
     Route: 042
     Dates: start: 20051124, end: 20051209
  7. TARGOCID [Suspect]
     Indication: ASPERGILLOSIS
     Dosage: INTRAVENOUS
     Route: 042
     Dates: start: 20051125
  8. VFEND [Suspect]
     Indication: ASPERGILLOSIS
     Dosage: 200 MG DOSE UNIT; INTRAVENOUS
     Route: 042
     Dates: start: 20051117, end: 20051129
  9. VFEND [Suspect]
     Indication: ASPERGILLOSIS
     Dosage: 200 MG DOSE UNIT; INTRAVENOUS
     Route: 042
     Dates: start: 20051209

REACTIONS (6)
  - APLASIA [None]
  - ARRHYTHMIA [None]
  - ASPERGILLOSIS [None]
  - BRADYCARDIA [None]
  - CARDIAC ARREST [None]
  - ELECTROCARDIOGRAM QT PROLONGED [None]
